FAERS Safety Report 20660335 (Version 1)
Quarter: 2022Q1

REPORT INFORMATION
  Report Type: Spontaneous
  Country: CN (occurrence: CN)
  Receive Date: 20220331
  Receipt Date: 20220331
  Transmission Date: 20220423
  Serious: Yes (Hospitalization, Other)
  Sender: FDA-Public Use
  Company Number: CN-009507513-2203CHN010091

PATIENT
  Age: 91 Year
  Sex: Male

DRUGS (3)
  1. CILASTATIN SODIUM\IMIPENEM [Suspect]
     Active Substance: CILASTATIN SODIUM\IMIPENEM
     Indication: Pneumonia
     Dosage: 1G, 2 TIMES PER DAY
     Route: 041
     Dates: start: 20220316, end: 20220316
  2. CILASTATIN SODIUM\IMIPENEM [Suspect]
     Active Substance: CILASTATIN SODIUM\IMIPENEM
     Dosage: 1G, 2 TIMES PER DAY
     Route: 041
     Dates: start: 20220317, end: 20220318
  3. SODIUM CHLORIDE [Concomitant]
     Active Substance: SODIUM CHLORIDE
     Indication: Pneumonia
     Dosage: 100 ML, 2 TIMES PER DAY; MANUFACTURER: HUNAN KELUN PHARMACEUTICAL CO., LTD.
     Route: 041
     Dates: start: 20220316, end: 20220316

REACTIONS (4)
  - Haematuria [Recovering/Resolving]
  - Urinary occult blood positive [Unknown]
  - Nephropathy toxic [Unknown]
  - Product use issue [Unknown]

NARRATIVE: CASE EVENT DATE: 20220301
